FAERS Safety Report 20493900 (Version 2)
Quarter: 2022Q1

REPORT INFORMATION
  Report Type: Report from Study
  Country: CA (occurrence: CA)
  Receive Date: 20220221
  Receipt Date: 20220223
  Transmission Date: 20220424
  Serious: Yes (Hospitalization)
  Sender: FDA-Public Use
  Company Number: CA-SERVIER-S22001394

PATIENT

DRUGS (14)
  1. PEGASPARGASE [Suspect]
     Active Substance: PEGASPARGASE
     Indication: B-cell type acute leukaemia
     Dosage: 2000 IU/M2, EVERY 14 DAYS
     Route: 042
     Dates: start: 20210816, end: 20220118
  2. CYTARABINE [Suspect]
     Active Substance: CYTARABINE
     Indication: B-cell type acute leukaemia
     Dosage: 30 MG, DAY 1 OF CYCLE
     Route: 037
     Dates: start: 20210827, end: 20211228
  3. CYTARABINE [Suspect]
     Active Substance: CYTARABINE
     Dosage: 100 MG/ML, ON DAYS 8-11 OF INDUCTION 1B
     Route: 058
     Dates: start: 20210914, end: 20210924
  4. CYTARABINE [Suspect]
     Active Substance: CYTARABINE
     Dosage: 20 MG/M2, ON D1 OF INDUCTION
     Route: 037
     Dates: start: 20210814, end: 20220118
  5. VINCRISTINE SULFATE [Suspect]
     Active Substance: VINCRISTINE SULFATE
     Indication: B-cell type acute leukaemia
     Dosage: 1.5 MG/M2, DAY 1 OF EACH 3-WEEKS CYCLE
     Route: 042
     Dates: start: 20210814, end: 20220118
  6. DOXORUBICIN HYDROCHLORIDE [Suspect]
     Active Substance: DOXORUBICIN HYDROCHLORIDE
     Indication: B-cell type acute leukaemia
     Dosage: 30 MG/M2, DAY 1 OF EACH 3-WEEKS CYCLE
     Route: 042
     Dates: start: 20210814, end: 20220118
  7. DEXAMETHASONE [Suspect]
     Active Substance: DEXAMETHASONE
     Indication: B-cell type acute leukaemia
     Dosage: 4 MG/ML, DAYS 1-18 OF INDUCTION
     Route: 042
     Dates: start: 20210811, end: 20210828
  8. DEXAMETHASONE [Suspect]
     Active Substance: DEXAMETHASONE
     Dosage: 1 MG/ML, DAYS 1-5 OF EACH 3 WEEKS CYCLE
     Route: 048
     Dates: start: 20210829, end: 20220118
  9. METHOTREXATE [Suspect]
     Active Substance: METHOTREXATE
     Indication: B-cell type acute leukaemia
     Dosage: 10 MG, ON D1 EVERY 9 WEEKS
     Route: 037
     Dates: start: 20210827, end: 20211228
  10. HYDROCORTISONE [Suspect]
     Active Substance: HYDROCORTISONE
     Indication: B-cell type acute leukaemia
     Dosage: 12 MG, ON D1 EVERY 9 WEEKS
     Route: 037
     Dates: start: 20210827, end: 20211228
  11. MERCAPTOPURINE [Suspect]
     Active Substance: MERCAPTOPURINE
     Indication: B-cell type acute leukaemia
     Dosage: 50 MG/M2, DAYS 1-14 OF EACH 3-WEEK CYCLE
     Route: 048
     Dates: start: 20210914, end: 20220126
  12. TN UNSPECIFIED [Concomitant]
     Indication: Product used for unknown indication
     Dosage: UNK
     Route: 065
  13. TN UNSPECIFIED [Concomitant]
     Indication: Product used for unknown indication
     Dosage: UNK
     Route: 065
  14. TN UNSPECIFIED [Concomitant]
     Indication: Product used for unknown indication
     Dosage: UNK
     Route: 065

REACTIONS (2)
  - Skin infection [Recovering/Resolving]
  - Cerebral thrombosis [Unknown]

NARRATIVE: CASE EVENT DATE: 20220204
